FAERS Safety Report 8592721-4 (Version None)
Quarter: 2012Q3

REPORT INFORMATION
  Report Type: 
  Country: None (occurrence: None)
  Receive Date: 20120814
  Receipt Date: 20120613
  Transmission Date: 20120928
  Serious: No
  Sender: FDA-Public Use
  Company Number: US-COVIDIEN/TYCO HEALTHCARE/MALLINCKRODT-T201202555

PATIENT
  Sex: Female
  Weight: 45.805 kg

DRUGS (5)
  1. FENTANYL [Suspect]
     Indication: PAIN
     Dosage: 75 MCG/HR, Q 72 HOURS
     Route: 062
  2. PREDNISONE TAB [Concomitant]
     Indication: ARTHRITIS
     Dosage: UNK
  3. HYDROCODONE BITARTRATE AND ACETAMINOPHEN [Concomitant]
     Indication: PAIN
     Dosage: UNK
  4. REMICADE [Concomitant]
     Indication: ARTHRITIS
     Dosage: UNK
  5. METHOTREXATE [Concomitant]
     Indication: ARTHRITIS
     Dosage: UNK

REACTIONS (3)
  - DECREASED APPETITE [None]
  - APPLICATION SITE PAIN [None]
  - APPLICATION SITE IRRITATION [None]
